FAERS Safety Report 25649783 (Version 1)
Quarter: 2025Q3

REPORT INFORMATION
  Report Type: Other
  Country: CN (occurrence: CN)
  Receive Date: 20250806
  Receipt Date: 20250806
  Transmission Date: 20251020
  Serious: Yes (Hospitalization, Other)
  Sender: INNOVIVA
  Company Number: CN-ISTX-2025-ISTX-000140

PATIENT

DRUGS (3)
  1. ZEVTERA [Suspect]
     Active Substance: CEFTOBIPROLE MEDOCARIL SODIUM
     Indication: Pneumonia
     Dosage: 500 MG, Q8HR
     Route: 041
     Dates: start: 20250707, end: 20250709
  2. ZEVTERA [Suspect]
     Active Substance: CEFTOBIPROLE MEDOCARIL SODIUM
     Dosage: 500 MG, Q8HR
     Route: 041
     Dates: start: 20250711
  3. VORICONAZOLE [Concomitant]
     Active Substance: VORICONAZOLE
     Indication: Anti-infective therapy
     Dates: start: 20250708, end: 20250709

REACTIONS (1)
  - Epilepsy [Recovered/Resolved]

NARRATIVE: CASE EVENT DATE: 20250709
